FAERS Safety Report 5355388-4 (Version None)
Quarter: 2007Q2

REPORT INFORMATION
  Report Type: 
  Country: None (occurrence: None)
  Receive Date: 20070611
  Receipt Date: 20070611
  Transmission Date: 20071010
  Serious: Yes (Hospitalization)
  Sender: FDA-Public Use
  Company Number: None

PATIENT
  Age: 59 Year
  Sex: Male
  Weight: 98.8842 kg

DRUGS (2)
  1. CISPLATIN [Suspect]
     Indication: SQUAMOUS CELL CARCINOMA
     Dosage: 80MG/M2, IV, Q WEEK
     Dates: start: 20070228
  2. ERBITUX [Suspect]
     Indication: SQUAMOUS CELL CARCINOMA
     Dosage: 250MG/M2, IV QWEEK
     Route: 042
     Dates: start: 20070228

REACTIONS (3)
  - NEUTROPENIA [None]
  - PAIN [None]
  - PYREXIA [None]
